FAERS Safety Report 26059757 (Version 1)
Quarter: 2025Q4

REPORT INFORMATION
  Report Type: Spontaneous
  Country: US (occurrence: US)
  Receive Date: 20251118
  Receipt Date: 20251118
  Transmission Date: 20260117
  Serious: Yes (Death)
  Sender: IQVIA RDS
  Company Number: US-INFLARX GMBH-INF-2025-000006

PATIENT
  Sex: Female

DRUGS (1)
  1. GOHIBIC [Suspect]
     Active Substance: VILOBELIMAB
     Indication: COVID-19
     Dosage: 800 MILLIGRAM, ONE TIME DOSE
     Route: 042
     Dates: start: 20251101, end: 20251101

REACTIONS (2)
  - Death [Fatal]
  - Off label use [Unknown]

NARRATIVE: CASE EVENT DATE: 20251101
